FAERS Safety Report 9870760 (Version 1)
Quarter: 2014Q1

REPORT INFORMATION
  Report Type: Spontaneous
  Country: US (occurrence: US)
  Receive Date: 20140205
  Receipt Date: 20140205
  Transmission Date: 20141002
  Serious: Yes (Other)
  Sender: FDA-Public Use
  Company Number: US-PFIZER INC-2014032847

PATIENT
  Sex: Female

DRUGS (4)
  1. NEURONTIN [Suspect]
     Indication: NEURALGIA
     Dosage: 300 MG, 3X/DAY
     Dates: start: 2011
  2. NEURONTIN [Suspect]
     Dosage: 1800 MG, DAILY
  3. NEURONTIN [Suspect]
     Dosage: 2400 MG, DAILY
  4. NEURONTIN [Suspect]
     Dosage: 1800 MG, DAILY

REACTIONS (10)
  - Off label use [Unknown]
  - Loss of consciousness [Unknown]
  - Middle insomnia [Unknown]
  - Fall [Unknown]
  - Contusion [Unknown]
  - Back pain [Unknown]
  - Nodule [Unknown]
  - Joint swelling [Unknown]
  - Logorrhoea [Unknown]
  - Amnesia [Unknown]
